FAERS Safety Report 4649978-1 (Version None)
Quarter: 2005Q2

REPORT INFORMATION
  Report Type: 
  Country: None (occurrence: None)
  Receive Date: 20050502
  Receipt Date: 20050422
  Transmission Date: 20051028
  Serious: Yes (Other)
  Sender: FDA-Public Use
  Company Number: PHBS2005BR05924

PATIENT
  Age: 54 Year
  Sex: Female
  Weight: 65 kg

DRUGS (1)
  1. ESTRADERM [Suspect]
     Indication: MENOPAUSE
     Dosage: TWICE A WEEK
     Route: 062
     Dates: start: 19900101, end: 20040101

REACTIONS (4)
  - DIARRHOEA [None]
  - HYSTERECTOMY [None]
  - UTERINE LEIOMYOMA [None]
  - VAGINAL HAEMORRHAGE [None]
